FAERS Safety Report 14135738 (Version 1)
Quarter: 2017Q4

REPORT INFORMATION
  Report Type: Spontaneous
  Country: US (occurrence: None)
  Receive Date: 20171026
  Receipt Date: 20171026
  Transmission Date: 20180321
  Serious: Yes (Hospitalization)
  Sender: FDA-Public Use
  Company Number: None

PATIENT
  Age: 55 Year
  Sex: Female
  Weight: 74.5 kg

DRUGS (10)
  1. CHOLECALCIFEROL [Concomitant]
     Active Substance: CHOLECALCIFEROL
  2. PRAVASTATIN. [Concomitant]
     Active Substance: PRAVASTATIN
  3. LEVEMIR [Suspect]
     Active Substance: INSULIN DETEMIR
  4. ALBUTEROL. [Concomitant]
     Active Substance: ALBUTEROL
  5. BUPROPION. [Concomitant]
     Active Substance: BUPROPION
  6. OMEPRAZOLE. [Concomitant]
     Active Substance: OMEPRAZOLE
  7. NOVOLOG [Suspect]
     Active Substance: INSULIN ASPART
  8. RIFAXIMIN. [Concomitant]
     Active Substance: RIFAXIMIN
  9. LOSARTAN. [Concomitant]
     Active Substance: LOSARTAN
  10. VENLAFAXINE [Concomitant]
     Active Substance: VENLAFAXINE HYDROCHLORIDE

REACTIONS (2)
  - Hepatic encephalopathy [None]
  - Hypoglycaemia [None]

NARRATIVE: CASE EVENT DATE: 20170616
